FAERS Safety Report 7886059-8 (Version None)
Quarter: 2011Q4

REPORT INFORMATION
  Report Type: 
  Country: None (occurrence: None)
  Receive Date: 20111102
  Receipt Date: 20110623
  Transmission Date: 20120403
  Serious: No
  Sender: FDA-Public Use
  Company Number: US-AMGEN-USASP2011024296

PATIENT
  Age: 43 Year
  Sex: Female
  Weight: 121.54 kg

DRUGS (8)
  1. ENBREL [Suspect]
     Indication: PSORIATIC ARTHROPATHY
  2. PRILOSEC [Concomitant]
  3. ENBREL [Suspect]
     Indication: ANKYLOSING SPONDYLITIS
     Dates: start: 20110505
  4. ENBREL [Suspect]
     Indication: PSORIASIS
  5. TENOVATE [Concomitant]
  6. LASIX [Concomitant]
  7. TEGRETOL [Concomitant]
  8. VOLTAREN [Concomitant]

REACTIONS (7)
  - PAIN [None]
  - NAUSEA [None]
  - DIARRHOEA [None]
  - FATIGUE [None]
  - VOMITING [None]
  - ARTHRALGIA [None]
  - ABDOMINAL PAIN UPPER [None]
